FAERS Safety Report 20181225 (Version 1)
Quarter: 2021Q4

REPORT INFORMATION
  Report Type: Spontaneous
  Country: US (occurrence: US)
  Receive Date: 20211214
  Receipt Date: 20211214
  Transmission Date: 20220303
  Serious: Yes (Other)
  Sender: FDA-Public Use
  Company Number: US-GW PHARMA-202112USGW06105

PATIENT

DRUGS (1)
  1. EPIDIOLEX [Suspect]
     Active Substance: CANNABIDIOL
     Indication: Seizure
     Dosage: 550 MILLIGRAM, QD (2.5ML IN THE MORNING AND 3ML IN THE EVENING), UPPED MEDICATION
     Route: 048
     Dates: start: 202004

REACTIONS (2)
  - Bedridden [Unknown]
  - Seizure [Unknown]
